FAERS Safety Report 20097579 (Version 5)
Quarter: 2022Q1

REPORT INFORMATION
  Report Type: Spontaneous
  Country: FR (occurrence: FR)
  Receive Date: 20211122
  Receipt Date: 20220126
  Transmission Date: 20220423
  Serious: Yes (Other)
  Sender: FDA-Public Use
  Company Number: FR-SANOFI-00808705

PATIENT
  Age: 84 Year
  Sex: Male

DRUGS (18)
  1. LOVENOX [Suspect]
     Active Substance: ENOXAPARIN SODIUM
     Indication: Venous thrombosis
     Dosage: 12000 IU, BID
     Dates: start: 20210906
  2. LEVOTHYROXINE SODIUM [Suspect]
     Active Substance: LEVOTHYROXINE SODIUM
     Indication: Blood thyroid stimulating hormone increased
     Dosage: 25 UG, QD
     Dates: start: 202103
  3. LEVOTHYROXINE SODIUM [Suspect]
     Active Substance: LEVOTHYROXINE SODIUM
     Dosage: 37 UG
     Route: 065
  4. LEVOTHYROXINE SODIUM [Suspect]
     Active Substance: LEVOTHYROXINE SODIUM
     Dosage: 1 DF, QD
  5. LOVENOX [Suspect]
     Active Substance: ENOXAPARIN SODIUM
     Dosage: ONLY ONE INJECTION PER DAY
  6. DOLIPRANE [Concomitant]
     Active Substance: ACETAMINOPHEN
     Indication: Pain
     Dosage: UNK UNK, PRN
  7. .ALPHA.-TOCOPHEROL [Concomitant]
     Active Substance: .ALPHA.-TOCOPHEROL
     Dosage: UNK
  8. LEVOTHYROXINE SODIUM [Concomitant]
     Active Substance: LEVOTHYROXINE SODIUM
     Dosage: 1.5 TO 2 TABLETS IN THE MORNING (DOSE NOT GIVEN)
     Route: 065
  9. MELILOT [Concomitant]
     Indication: Anticoagulant therapy
     Dosage: UNK
     Route: 065
  10. SPIRULINE [SPIRULINA SPP.] [Concomitant]
  11. VITAMIN E [Concomitant]
     Active Substance: .ALPHA.-TOCOPHEROL
     Dosage: UNK
     Route: 065
  12. FERROUS SULFATE [Concomitant]
     Active Substance: FERROUS SULFATE
     Dosage: UNK
     Route: 065
  13. FERROUS SULFATE [Concomitant]
     Active Substance: FERROUS SULFATE
  14. VITAMIN E [Concomitant]
     Active Substance: .ALPHA.-TOCOPHEROL
     Dosage: UNK
  15. LEVOTHYROXINE SODIUM [Suspect]
     Active Substance: LEVOTHYROXINE SODIUM
  16. AZITHROMYCIN [AZITHROMYCIN DIHYDRATE] [Concomitant]
  17. ARSENIC [Concomitant]
     Active Substance: ARSENIC
  18. IODINE [POVIDONE-IODINE] [Concomitant]

REACTIONS (25)
  - Paralysis [Not Recovered/Not Resolved]
  - Myxoedema [Not Recovered/Not Resolved]
  - Muscle spasms [Not Recovered/Not Resolved]
  - Tachycardia [Not Recovered/Not Resolved]
  - Weight decreased [Not Recovered/Not Resolved]
  - C-reactive protein increased [Not Recovered/Not Resolved]
  - Infection [Unknown]
  - Weight decreased [Unknown]
  - Feeling hot [Unknown]
  - Oedema [Unknown]
  - Pain [Unknown]
  - Exposure to toxic agent [Recovered/Resolved]
  - Thyroid disorder [Unknown]
  - Anaemia [Unknown]
  - Injection site haemorrhage [Not Recovered/Not Resolved]
  - Injection site induration [Not Recovered/Not Resolved]
  - Platelet count increased [Not Recovered/Not Resolved]
  - Injection site pain [Unknown]
  - Platelet count increased [Unknown]
  - Injection site induration [Unknown]
  - Injection site mass [Unknown]
  - Product preparation issue [Unknown]
  - Product preparation error [Unknown]
  - Joint swelling [Not Recovered/Not Resolved]
  - Gait inability [Not Recovered/Not Resolved]

NARRATIVE: CASE EVENT DATE: 20210724
